FAERS Safety Report 8814738 (Version 2)
Quarter: 2012Q4

REPORT INFORMATION
  Report Type: 
  Country: JP (occurrence: JP)
  Receive Date: 20120928
  Receipt Date: 20121029
  Transmission Date: 20130627
  Serious: Yes (Other)
  Sender: FDA-Public Use
  Company Number: JP-B.I. PHARMACEUTICALS,INC./RIDGEFIELD-2012-BP-18914NB

PATIENT
  Age: 66 Year
  Sex: Male

DRUGS (7)
  1. PRAZAXA [Suspect]
     Indication: ATRIAL FIBRILLATION
     Dosage: 220 mg
     Route: 048
     Dates: start: 20120718
  2. AVAPRO [Concomitant]
     Indication: HYPERTENSION
     Dosage: 100 mg
     Route: 048
     Dates: start: 20110108
  3. CALBLOCK [Concomitant]
     Indication: HYPERTENSION
     Dosage: 8 mg
     Route: 048
     Dates: start: 20110108
  4. TAKEPRON [Concomitant]
     Indication: GASTROOESOPHAGEAL REFLUX DISEASE
     Dosage: 30 mg
     Route: 048
     Dates: start: 20110108
  5. LIPIDIL [Concomitant]
     Indication: HYPERTRIGLYCERIDAEMIA
     Dosage: 80 mg
     Route: 048
     Dates: start: 20110108
  6. SUNRYTHM [Concomitant]
     Indication: ATRIAL FIBRILLATION
     Dosage: 150 mg
     Route: 048
  7. GASTROM [Concomitant]
     Indication: GASTROOESOPHAGEAL REFLUX DISEASE
     Route: 048
     Dates: start: 20120718

REACTIONS (4)
  - Gastric cancer [Not Recovered/Not Resolved]
  - Tachycardia [Recovered/Resolved]
  - Cough [Not Recovered/Not Resolved]
  - Anaemia [Not Recovered/Not Resolved]
